FAERS Safety Report 17187796 (Version 1)
Quarter: 2019Q4

REPORT INFORMATION
  Report Type: Spontaneous
  Country: NL (occurrence: NL)
  Receive Date: 20191221
  Receipt Date: 20191221
  Transmission Date: 20200122
  Serious: Yes (Life-Threatening, Hospitalization, Other)
  Sender: FDA-Public Use
  Company Number: NL-AUROBINDO-AUR-APL-2019-105689

PATIENT
  Age: 69 Year
  Sex: Male
  Weight: 94 kg

DRUGS (9)
  1. CALCIUM CARBONATE;COLECALCIFEROL [Concomitant]
     Active Substance: CALCIUM CARBONATE\CHOLECALCIFEROL
     Indication: PRODUCT USED FOR UNKNOWN INDICATION
     Dosage: 1 DOSAGE FORM, 3 TIMES A DAY(3DD)
     Route: 065
  2. METOPROLOLSUCCINAAT [Concomitant]
     Active Substance: METOPROLOL SUCCINATE
     Dosage: 200 MILLIGRAM, ONCE A DAY (1DD1)
     Route: 065
  3. SIMVASTATINE [Concomitant]
     Active Substance: SIMVASTATIN
     Indication: PRODUCT USED FOR UNKNOWN INDICATION
     Dosage: 40 MILLIGRAM, ONCE A DAY (1DD1)
     Route: 065
  4. ALLOPURINOL. [Concomitant]
     Active Substance: ALLOPURINOL
     Indication: PRODUCT USED FOR UNKNOWN INDICATION
     Dosage: 300 MILLIGRAM, TWO TIMES A DAY (2DD1)
     Route: 048
  5. TEMAZEPAM. [Concomitant]
     Active Substance: TEMAZEPAM
     Indication: PRODUCT USED FOR UNKNOWN INDICATION
     Dosage: 20 MILLIGRAM (ZN)
     Route: 065
  6. LOSARTAN. [Concomitant]
     Active Substance: LOSARTAN
     Indication: PRODUCT USED FOR UNKNOWN INDICATION
     Dosage: 50 MILLIGRAM, ONCE A DAY,1DD1
     Route: 065
  7. LISINOPRIL TABLETS 30MG [Suspect]
     Active Substance: LISINOPRIL
     Indication: HYPERTENSION
     Dosage: 30 MILLIGRAM, ONCE A DAY (1X PER DAG 1 STUK)
     Route: 048
     Dates: start: 2009, end: 20191125
  8. CETOMACROGOL [Concomitant]
     Active Substance: COSMETICS
     Indication: PRODUCT USED FOR UNKNOWN INDICATION
     Dosage: UNK,ZN
     Route: 065
  9. AMLODIPINE [Concomitant]
     Active Substance: AMLODIPINE BESYLATE
     Indication: PRODUCT USED FOR UNKNOWN INDICATION
     Dosage: 10 MILLIGRAM, ONCE A DAY,1DD1
     Route: 048

REACTIONS (2)
  - Angioedema [Recovered/Resolved]
  - Tongue oedema [Recovered/Resolved]

NARRATIVE: CASE EVENT DATE: 20191124
